FAERS Safety Report 25422441 (Version 1)
Quarter: 2025Q2

REPORT INFORMATION
  Report Type: Spontaneous
  Country: CN (occurrence: CN)
  Receive Date: 20250611
  Receipt Date: 20250611
  Transmission Date: 20250716
  Serious: Yes (Hospitalization)
  Sender: Steriscience PTE
  Company Number: None

PATIENT
  Age: 30 Year
  Sex: Male

DRUGS (12)
  1. VANCOMYCIN [Suspect]
     Active Substance: VANCOMYCIN
     Indication: Antibiotic therapy
     Route: 065
     Dates: start: 2020, end: 2020
  2. VANCOMYCIN [Suspect]
     Active Substance: VANCOMYCIN
     Indication: Gastritis
  3. MEROPENEM [Suspect]
     Active Substance: MEROPENEM
     Indication: Antibiotic therapy
     Route: 065
     Dates: start: 2020, end: 2020
  4. MEROPENEM [Suspect]
     Active Substance: MEROPENEM
     Indication: Gastritis
  5. VORICONAZOLE [Suspect]
     Active Substance: VORICONAZOLE
     Indication: Antibiotic therapy
     Route: 065
     Dates: start: 2020, end: 2020
  6. VORICONAZOLE [Suspect]
     Active Substance: VORICONAZOLE
     Indication: Gastritis
  7. VINCRISTINE [Suspect]
     Active Substance: VINCRISTINE
     Indication: Acute myeloid leukaemia
     Route: 065
     Dates: start: 202008
  8. CYCLOPHOSPHAMIDE [Suspect]
     Active Substance: CYCLOPHOSPHAMIDE
     Indication: Acute myeloid leukaemia
     Route: 065
     Dates: start: 202008
  9. ASPARAGINASE [Suspect]
     Active Substance: ASPARAGINASE
     Indication: Acute myeloid leukaemia
     Route: 065
     Dates: start: 202008
  10. PREDNISONE [Suspect]
     Active Substance: PREDNISONE
     Indication: Acute myeloid leukaemia
     Route: 065
     Dates: start: 202008
  11. DAUNORUBICIN [Suspect]
     Active Substance: DAUNORUBICIN
     Indication: Acute myeloid leukaemia
     Route: 065
     Dates: start: 202008
  12. DASATINIB [Suspect]
     Active Substance: DASATINIB
     Indication: Acute myeloid leukaemia
     Route: 065
     Dates: start: 202008

REACTIONS (3)
  - Condition aggravated [Unknown]
  - Drug ineffective for unapproved indication [Unknown]
  - Treatment noncompliance [Unknown]

NARRATIVE: CASE EVENT DATE: 20200101
